FAERS Safety Report 17704243 (Version 3)
Quarter: 2020Q2

REPORT INFORMATION
  Report Type: Spontaneous
  Country: US (occurrence: US)
  Receive Date: 20200424
  Receipt Date: 20200608
  Transmission Date: 20200714
  Serious: No
  Sender: FDA-Public Use
  Company Number: US-SHIRE-US202014405

PATIENT
  Age: 73 Year
  Sex: Female
  Weight: 74.83 kg

DRUGS (2)
  1. OCTREOTIDE [OCTREOTIDE ACETATE] [Concomitant]
     Active Substance: OCTREOTIDE ACETATE
     Indication: DIARRHOEA
  2. GATTEX [Suspect]
     Active Substance: TEDUGLUTIDE\WATER
     Indication: SHORT-BOWEL SYNDROME
     Dosage: 3.75 MILLIGRAM, 1X/DAY:QD
     Route: 058
     Dates: start: 20200416

REACTIONS (6)
  - Bowel movement irregularity [Recovering/Resolving]
  - Defaecation urgency [Unknown]
  - Diarrhoea [Recovered/Resolved]
  - Abdominal distension [Unknown]
  - Accident [Recovered/Resolved]
  - Anal incontinence [Unknown]

NARRATIVE: CASE EVENT DATE: 20200420
